FAERS Safety Report 5104505-X (Version None)
Quarter: 2006Q3

REPORT INFORMATION
  Report Type: 
  Country: None (occurrence: None)
  Receive Date: 20060731
  Receipt Date: 20060502
  Transmission Date: 20061208
  Serious: Yes (Other)
  Sender: FDA-Public Use
  Company Number: NSADSS2002034938

PATIENT
  Age: 10 Year
  Sex: Male

DRUGS (6)
  1. RISPERDAL [Suspect]
     Indication: DELUSIONAL DISORDER, UNSPECIFIED TYPE
     Dosage: SEE IMAGE
     Route: 048
     Dates: start: 20000711, end: 20020101
  2. RISPERDAL [Suspect]
     Indication: PSYCHOMOTOR HYPERACTIVITY
     Dosage: SEE IMAGE
     Route: 048
     Dates: start: 20000711, end: 20020101
  3. PROZAC [Suspect]
     Indication: DELUSIONAL DISORDER, UNSPECIFIED TYPE
     Dosage: 10 MG, 1 IN 1 DAY, ORAL
     Route: 048
  4. PROZAC [Suspect]
     Indication: PSYCHOMOTOR HYPERACTIVITY
     Dosage: 10 MG, 1 IN 1 DAY, ORAL
     Route: 048
  5. RITALIN [Concomitant]
  6. CONCERTA [Concomitant]

REACTIONS (9)
  - ANXIETY [None]
  - BLADDER SPASM [None]
  - DECREASED APPETITE [None]
  - MEMORY IMPAIRMENT [None]
  - MONOCYTOSIS [None]
  - SLEEP APNOEA SYNDROME [None]
  - TARDIVE DYSKINESIA [None]
  - TREMOR [None]
  - WEIGHT INCREASED [None]
